FAERS Safety Report 17719592 (Version 1)
Quarter: 2020Q2

REPORT INFORMATION
  Report Type: Spontaneous
  Country: CA (occurrence: CA)
  Receive Date: 20200428
  Receipt Date: 20200428
  Transmission Date: 20200714
  Serious: Yes (Other)
  Sender: FDA-Public Use
  Company Number: CA-PFIZER INC-2020167881

PATIENT
  Age: 12 Year
  Sex: Male
  Weight: 22 kg

DRUGS (2)
  1. GENOTROPIN [Suspect]
     Active Substance: SOMATROPIN
     Indication: SHORT STATURE
     Dosage: 1.2 MG 6X/WEEK
     Route: 058
     Dates: start: 20190704, end: 201909
  2. GENOTROPIN [Suspect]
     Active Substance: SOMATROPIN
     Dosage: 1.4 MG 6X/WEEK
     Route: 058
     Dates: start: 201909

REACTIONS (6)
  - Blood testosterone decreased [Unknown]
  - Neutropenia [Unknown]
  - Nocturia [Unknown]
  - Blood follicle stimulating hormone decreased [Unknown]
  - Neutrophil count decreased [Unknown]
  - White blood cell count decreased [Unknown]
